FAERS Safety Report 4636668-4 (Version None)
Quarter: 2005Q2

REPORT INFORMATION
  Report Type: 
  Country: None (occurrence: None)
  Receive Date: 20050414
  Receipt Date: 20050405
  Transmission Date: 20051028
  Serious: Yes (Other)
  Sender: FDA-Public Use
  Company Number: 2002-02-2435

PATIENT
  Age: 38 Year
  Sex: Male

DRUGS (4)
  1. RIBAVIRIN [Suspect]
     Indication: HEPATITIS C
     Dosage: 1200 MG QD ORAL
     Route: 048
     Dates: start: 19991101, end: 20000401
  2. ROFERON-A [Suspect]
     Indication: HEPATITIS C
     Dosage: 9-3 MU QD-3W* SUBCUTANEOUS
     Route: 058
     Dates: start: 19991101, end: 19991201
  3. ROFERON-A [Suspect]
     Indication: HEPATITIS C
     Dosage: 9-3 MU QD-3W* SUBCUTANEOUS
     Route: 058
     Dates: start: 19991201, end: 20000401
  4. AMANTADINE HCL [Suspect]
     Indication: HEPATITIS C
     Dosage: 200 MG QD
     Dates: start: 19991101, end: 20000401

REACTIONS (14)
  - ARTHRALGIA [None]
  - ASTHENIA [None]
  - CONDITION AGGRAVATED [None]
  - CONSTIPATION [None]
  - CUTANEOUS SARCOIDOSIS [None]
  - DRUG INTERACTION POTENTIATION [None]
  - DRUG RESISTANCE [None]
  - DRY MOUTH [None]
  - HEADACHE [None]
  - INSOMNIA [None]
  - NASAL DRYNESS [None]
  - NODULE ON EXTREMITY [None]
  - PYREXIA [None]
  - THERAPY NON-RESPONDER [None]
